FAERS Safety Report 5852457-7 (Version None)
Quarter: 2008Q3

REPORT INFORMATION
  Report Type: 
  Country: None (occurrence: None)
  Receive Date: 20080821
  Receipt Date: 20080813
  Transmission Date: 20090109
  Serious: Yes (Hospitalization)
  Sender: FDA-Public Use
  Company Number: GB-JNJFOC-20080707368

PATIENT
  Sex: Female

DRUGS (4)
  1. REOPRO [Suspect]
     Indication: PERCUTANEOUS CORONARY INTERVENTION
  2. ASPIRIN [Suspect]
     Indication: PERCUTANEOUS CORONARY INTERVENTION
  3. CLOPIDOGREL [Suspect]
     Indication: PERCUTANEOUS CORONARY INTERVENTION
  4. HEPARIN [Suspect]
     Indication: PERCUTANEOUS CORONARY INTERVENTION
     Route: 013

REACTIONS (2)
  - RETROPERITONEAL HAEMORRHAGE [None]
  - SHOCK HAEMORRHAGIC [None]
